FAERS Safety Report 16258840 (Version 1)
Quarter: 2019Q2

REPORT INFORMATION
  Report Type: Spontaneous
  Country: US (occurrence: US)
  Receive Date: 20190501
  Receipt Date: 20190501
  Transmission Date: 20190711
  Serious: No
  Sender: FDA-Public Use
  Company Number: PHEH2019US017779

PATIENT
  Sex: Female

DRUGS (1)
  1. COSENTYX [Suspect]
     Active Substance: SECUKINUMAB
     Indication: ANKYLOSING SPONDYLITIS
     Dosage: UNK UNK, QMO
     Route: 058

REACTIONS (6)
  - Ear infection [Unknown]
  - Vertigo [Unknown]
  - Diarrhoea [Unknown]
  - Gastroenteritis [Unknown]
  - Sinusitis [Unknown]
  - Influenza [Unknown]
